FAERS Safety Report 7778446-3 (Version None)
Quarter: 2011Q3

REPORT INFORMATION
  Report Type: 
  Country: None (occurrence: None)
  Receive Date: 20110926
  Receipt Date: 20110111
  Transmission Date: 20111222
  Serious: Yes (Life-Threatening, Hospitalization)
  Sender: FDA-Public Use
  Company Number: JP-GLAXOSMITHKLINE-B0693336A

PATIENT
  Sex: Female
  Weight: 41 kg

DRUGS (14)
  1. MUCOSTA [Concomitant]
     Indication: PROPHYLAXIS
     Route: 048
  2. VOLIBRIS [Suspect]
     Indication: PULMONARY HYPERTENSION
     Route: 048
     Dates: start: 20101019, end: 20101224
  3. URSO 250 [Concomitant]
     Route: 048
  4. ASPARTIC ACID [Concomitant]
     Indication: PROPHYLAXIS
  5. REVATIO [Suspect]
     Indication: PULMONARY HYPERTENSION
     Route: 048
  6. FUROSEMIDE [Concomitant]
     Route: 048
  7. GLAKAY [Concomitant]
     Indication: PROPHYLAXIS
     Route: 048
  8. LOXONIN [Concomitant]
     Route: 048
  9. ALDACTONE [Concomitant]
     Indication: PROPHYLAXIS
     Route: 048
  10. MAGMITT [Concomitant]
     Route: 048
  11. PREDNISOLONE [Concomitant]
     Indication: SCLERODERMA
     Route: 048
  12. LANSOPRAZOLE [Concomitant]
     Route: 048
  13. FLOLAN [Suspect]
     Indication: PULMONARY ARTERIAL HYPERTENSION
     Route: 042
     Dates: end: 20101129
  14. FLOLAN [Suspect]
     Dates: start: 20101130

REACTIONS (2)
  - PULMONARY ALVEOLAR HAEMORRHAGE [None]
  - CARDIAC FAILURE [None]
